FAERS Safety Report 7495920-8 (Version None)
Quarter: 2011Q2

REPORT INFORMATION
  Report Type: 
  Country: None (occurrence: None)
  Receive Date: 20110523
  Receipt Date: 20110509
  Transmission Date: 20111010
  Serious: Yes (Other)
  Sender: FDA-Public Use
  Company Number: GB-TEVA-281989ISR

PATIENT
  Age: 33 Year
  Sex: Female

DRUGS (7)
  1. ETOPOSIDE [Suspect]
     Indication: BURKITT'S LYMPHOMA
  2. CYCLOPHOSPHAMIDE [Suspect]
     Indication: BURKITT'S LYMPHOMA
  3. METHOTREXATE [Suspect]
     Indication: BURKITT'S LYMPHOMA
  4. DOXORUBICIN HCL [Suspect]
     Indication: BURKITT'S LYMPHOMA
     Route: 042
  5. IFOSFAMIDE [Suspect]
     Indication: BURKITT'S LYMPHOMA
  6. VINCRISTINE [Suspect]
     Indication: BURKITT'S LYMPHOMA
  7. CYTARABINE [Suspect]
     Indication: BURKITT'S LYMPHOMA

REACTIONS (3)
  - OESOPHAGEAL CANDIDIASIS [None]
  - PNEUMOCYSTIS JIROVECI PNEUMONIA [None]
  - MUCOSAL INFLAMMATION [None]
